FAERS Safety Report 25897545 (Version 1)
Quarter: 2025Q4

REPORT INFORMATION
  Report Type: Spontaneous
  Country: EU (occurrence: EU)
  Receive Date: 20251008
  Receipt Date: 20251008
  Transmission Date: 20260117
  Serious: Yes (Death)
  Sender: ABBVIE
  Company Number: EU-ABBVIE-6492418

PATIENT
  Age: 60 Year
  Sex: Male

DRUGS (3)
  1. ADALIMUMAB [Suspect]
     Active Substance: ADALIMUMAB
     Indication: Cutaneous T-cell lymphoma
     Route: 058
     Dates: start: 2014, end: 2017
  2. UPADACITINIB [Suspect]
     Active Substance: UPADACITINIB
     Indication: Cutaneous T-cell lymphoma
     Route: 048
     Dates: start: 202405
  3. BARICITINIB [Suspect]
     Active Substance: BARICITINIB
     Indication: Cutaneous T-cell lymphoma
     Dates: start: 202308, end: 202404

REACTIONS (2)
  - Cutaneous T-cell lymphoma [Fatal]
  - Therapeutic product effect incomplete [Unknown]
